FAERS Safety Report 8154936-9 (Version None)
Quarter: 2012Q1

REPORT INFORMATION
  Report Type: 
  Country: None (occurrence: None)
  Receive Date: 20120221
  Receipt Date: 20120216
  Transmission Date: 20120608
  Serious: Yes (Other)
  Sender: FDA-Public Use
  Company Number: PHEH2012US004017

PATIENT
  Sex: Female

DRUGS (21)
  1. RECLAST [Suspect]
     Route: 042
  2. PRILOSEC [Concomitant]
  3. CELEBREX [Concomitant]
  4. DABIGATRAN [Concomitant]
  5. CYMBALTA [Suspect]
  6. MIRTAZAPINE [Concomitant]
  7. METAXALONE [Concomitant]
  8. LIPITOR [Concomitant]
  9. METFORMIN HCL [Concomitant]
  10. SYNTHROID [Concomitant]
  11. CALCIUM [Concomitant]
  12. NUVIGIL [Concomitant]
  13. METOPROLOL TARTRATE [Concomitant]
  14. TERRAMYCIN V CAP [Concomitant]
  15. LYRICA [Concomitant]
  16. FLECTOR [Concomitant]
  17. FISH OIL [Concomitant]
  18. LORTAB [Concomitant]
  19. VITAMIN B-12 [Concomitant]
  20. VITAMIN D [Concomitant]
  21. STOOL SOFTENER [Concomitant]
     Dosage: UNK UKN, PRN

REACTIONS (1)
  - OSTEONECROSIS [None]
